FAERS Safety Report 11738173 (Version 1)
Quarter: 2015Q4

REPORT INFORMATION
  Report Type: Report from Study
  Country: US (occurrence: US)
  Receive Date: 20151113
  Receipt Date: 20151113
  Transmission Date: 20160304
  Serious: Yes (Other)
  Sender: FDA-Public Use
  Company Number: US-AMGEN-USASL2015118416

PATIENT
  Age: 58 Year
  Sex: Female

DRUGS (1)
  1. REPATHA [Suspect]
     Active Substance: EVOLOCUMAB
     Indication: HYPERCHOLESTEROLAEMIA
     Dosage: 140 MG, Q2WK
     Route: 065
     Dates: start: 20151021

REACTIONS (10)
  - Throat irritation [Recovered/Resolved]
  - Erythema [Recovered/Resolved]
  - Dysphonia [Recovering/Resolving]
  - Swelling face [Recovered/Resolved]
  - Pyrexia [Recovered/Resolved]
  - Injection site swelling [Recovered/Resolved]
  - Chest pain [Recovered/Resolved]
  - Flushing [Recovered/Resolved]
  - Dry mouth [Recovered/Resolved]
  - Headache [Recovered/Resolved]

NARRATIVE: CASE EVENT DATE: 20151021
